FAERS Safety Report 15275093 (Version 1)
Quarter: 2018Q3

REPORT INFORMATION
  Report Type: Spontaneous
  Country: ES (occurrence: ES)
  Receive Date: 20180814
  Receipt Date: 20180814
  Transmission Date: 20181010
  Serious: Yes (Other)
  Sender: FDA-Public Use
  Company Number: ES-009507513-2007-165247-NL

PATIENT
  Sex: Female
  Weight: 68 kg

DRUGS (2)
  1. ANTIMICROBIAL (UNSPECIFIED) [Interacting]
     Active Substance: UNSPECIFIED INGREDIENT
     Indication: TUBERCULOSIS
     Dosage: CONTINUING: YES
     Route: 065
     Dates: start: 20070712
  2. IMPLANON [Suspect]
     Active Substance: ETONOGESTREL
     Indication: CONTRACEPTION
     Dosage: CONTINUING: NO
     Route: 059
     Dates: start: 20051102, end: 20071002

REACTIONS (3)
  - Pregnancy with implant contraceptive [Recovered/Resolved]
  - Therapeutic response decreased [Recovered/Resolved]
  - Tuberculosis [Not Recovered/Not Resolved]

NARRATIVE: CASE EVENT DATE: 2007
